FAERS Safety Report 7913565-X (Version None)
Quarter: 2011Q4

REPORT INFORMATION
  Report Type: 
  Country: None (occurrence: None)
  Receive Date: 20111115
  Receipt Date: 20111005
  Transmission Date: 20120403
  Serious: No
  Sender: FDA-Public Use
  Company Number: US-BAYER-2011-084627

PATIENT
  Age: 68 Year
  Sex: Male

DRUGS (2)
  1. ANTIHYPERTENSIVES [Concomitant]
     Indication: HYPERTENSION
     Dosage: UNK
  2. STAXYN [Suspect]
     Indication: APHRODISIAC THERAPY
     Dosage: 10 MG, UNK
     Route: 048
     Dates: start: 20110909

REACTIONS (1)
  - DRUG INEFFECTIVE [None]
